FAERS Safety Report 24443505 (Version 2)
Quarter: 2024Q4

REPORT INFORMATION
  Report Type: Report from Study
  Country: US (occurrence: US)
  Receive Date: 20241016
  Receipt Date: 20241017
  Transmission Date: 20250115
  Serious: No
  Sender: ROCHE
  Company Number: US-ROCHE-2215744

PATIENT
  Age: 46 Year
  Sex: Female

DRUGS (8)
  1. RITUXAN [Suspect]
     Active Substance: RITUXIMAB
     Indication: Systemic lupus erythematosus
     Dosage: AFTER THAT EVERY 4 MONTHS
     Route: 042
     Dates: start: 20210111
  2. RITUXAN [Suspect]
     Active Substance: RITUXIMAB
     Indication: Polymyositis
     Route: 042
     Dates: start: 20231204
  3. RITUXAN [Suspect]
     Active Substance: RITUXIMAB
     Indication: Polymyositis
  4. RITUXAN [Suspect]
     Active Substance: RITUXIMAB
     Indication: Myopathy
  5. PREDNISONE [Concomitant]
     Active Substance: PREDNISONE
  6. OMEPRAZOLE [Concomitant]
     Active Substance: OMEPRAZOLE
  7. BYSTOLIC [Concomitant]
     Active Substance: NEBIVOLOL HYDROCHLORIDE
  8. FAMOTIDINE [Concomitant]
     Active Substance: FAMOTIDINE

REACTIONS (2)
  - Off label use [Unknown]
  - No adverse event [Unknown]
